FAERS Safety Report 21754076 (Version 1)
Quarter: 2022Q4

REPORT INFORMATION
  Report Type: Spontaneous
  Country: US (occurrence: None)
  Receive Date: 20221219
  Receipt Date: 20221219
  Transmission Date: 20230113
  Serious: Yes (Disabling)
  Sender: FDA-Public Use
  Company Number: None

PATIENT
  Age: 42 Year
  Sex: Female
  Weight: 85.5 kg

DRUGS (11)
  1. BUPROPION [Suspect]
     Active Substance: BUPROPION
     Indication: Depression
     Dosage: OTHER QUANTITY : 1 TABLET(S);?FREQUENCY : TWICE A DAY;?
     Route: 048
  2. BUPROPION [Suspect]
     Active Substance: BUPROPION
     Indication: Ex-tobacco user
  3. ALBUTEROL [Concomitant]
     Active Substance: ALBUTEROL
  4. VALACYCLOVIR [Concomitant]
     Active Substance: VALACYCLOVIR HYDROCHLORIDE
  5. INDOMETHACIN [Concomitant]
     Active Substance: INDOMETHACIN
  6. MECLIZINE [Concomitant]
     Active Substance: MECLIZINE HYDROCHLORIDE
  7. PREDNISONE [Concomitant]
     Active Substance: PREDNISONE
  8. citerizene [Concomitant]
  9. b-complex plus b 12 vitamin [Concomitant]
  10. ACETAMINOPHEN [Concomitant]
     Active Substance: ACETAMINOPHEN
  11. FLUTICASONE [Concomitant]
     Active Substance: FLUTICASONE

REACTIONS (14)
  - Head discomfort [None]
  - Pain [None]
  - Emotional distress [None]
  - Ocular hyperaemia [None]
  - Hyperhidrosis [None]
  - Dizziness [None]
  - Myalgia [None]
  - Presyncope [None]
  - Visual impairment [None]
  - Heart rate increased [None]
  - Tremor [None]
  - Muscle spasms [None]
  - Headache [None]
  - Muscle tightness [None]

NARRATIVE: CASE EVENT DATE: 20200424
